FAERS Safety Report 14602856 (Version 1)
Quarter: 2018Q1

REPORT INFORMATION
  Report Type: Spontaneous
  Country: US (occurrence: US)
  Receive Date: 20180304
  Receipt Date: 20180304
  Transmission Date: 20180509
  Serious: No
  Sender: FDA-Public Use
  Company Number: None

PATIENT
  Age: 51 Year
  Sex: Male

DRUGS (1)
  1. TENOFOVIR [Suspect]
     Active Substance: TENOFOVIR
     Indication: CHRONIC HEPATITIS B
     Route: 048
     Dates: start: 20180215

REACTIONS (3)
  - Drug dose omission [None]
  - Rash pruritic [None]
  - Product substitution issue [None]

NARRATIVE: CASE EVENT DATE: 20180215
